FAERS Safety Report 10698543 (Version 1)
Quarter: 2014Q4

REPORT INFORMATION
  Report Type: Spontaneous
  Country: US (occurrence: None)
  Receive Date: 20141223
  Receipt Date: 20141223
  Transmission Date: 20150529
  Serious: No
  Sender: FDA-Public Use
  Company Number: 1000071094

PATIENT
  Age: 82 Year
  Sex: Male
  Weight: 81 kg

DRUGS (5)
  1. PREDNISONE. [Concomitant]
     Active Substance: PREDNISONE
  2. LINZESS [Suspect]
     Active Substance: LINACLOTIDE
     Indication: CONSTIPATION
     Route: 048
     Dates: start: 201407
  3. BLOOD PRESSURE MEDICATION (BLOOD PRESSURE MEDICATION) [Concomitant]
  4. IBUPROFEN. [Concomitant]
     Active Substance: IBUPROFEN
  5. CHOLESTEROL MEDICATION (CHOLESTEROL MEDICATION) [Concomitant]

REACTIONS (2)
  - Weight decreased [None]
  - Off label use [None]

NARRATIVE: CASE EVENT DATE: 201407
